FAERS Safety Report 6405798-9 (Version None)
Quarter: 2009Q4

REPORT INFORMATION
  Report Type: 
  Country: None (occurrence: None)
  Receive Date: 20091016
  Receipt Date: 20091016
  Transmission Date: 20100525
  Serious: Yes (Life-Threatening)
  Sender: FDA-Public Use
  Company Number: None

PATIENT
  Sex: Female
  Weight: 49.8957 kg

DRUGS (1)
  1. EFFEXOR [Suspect]
     Indication: DEPRESSION
     Dosage: 75MG 2 TIMES PER DAY PO
     Route: 048
     Dates: start: 20090115, end: 20090926

REACTIONS (14)
  - AMNESIA [None]
  - BLOOD PRESSURE FLUCTUATION [None]
  - DYSARTHRIA [None]
  - HALLUCINATION [None]
  - HEADACHE [None]
  - LOSS OF CONSCIOUSNESS [None]
  - MENTAL DISORDER [None]
  - NIGHT SWEATS [None]
  - NIGHTMARE [None]
  - PAIN [None]
  - PARAESTHESIA [None]
  - PRODUCT SUBSTITUTION ISSUE [None]
  - ROAD TRAFFIC ACCIDENT [None]
  - WITHDRAWAL SYNDROME [None]
